APPROVED DRUG PRODUCT: SOTALOL HYDROCHLORIDE
Active Ingredient: SOTALOL HYDROCHLORIDE
Strength: 160MG
Dosage Form/Route: TABLET;ORAL
Application: A075429 | Product #003 | TE Code: AB
Applicant: TEVA PHARMACEUTICALS USA INC
Approved: May 1, 2000 | RLD: No | RS: No | Type: RX